FAERS Safety Report 17288218 (Version 1)
Quarter: 2020Q1

REPORT INFORMATION
  Report Type: Spontaneous
  Country: JO (occurrence: JO)
  Receive Date: 20200120
  Receipt Date: 20200120
  Transmission Date: 20200409
  Serious: Yes (Death, Hospitalization)
  Sender: FDA-Public Use
  Company Number: JO-UNICHEM PHARMACEUTICALS (USA) INC-UCM202001-000100

PATIENT
  Age: 40 Year
  Sex: Female

DRUGS (9)
  1. MIRTAZAPINE. [Suspect]
     Active Substance: MIRTAZAPINE
     Indication: DEPRESSION
     Route: 048
  2. VENLAFAXINE [Suspect]
     Active Substance: VENLAFAXINE HYDROCHLORIDE
     Indication: DEPRESSION
     Route: 048
  3. LAMOTRIGINE. [Suspect]
     Active Substance: LAMOTRIGINE
     Indication: DEPRESSION
     Route: 048
  4. QUETIAPINE. [Suspect]
     Active Substance: QUETIAPINE
     Indication: DEPRESSION
     Route: 048
  5. QUETIAPINE. [Suspect]
     Active Substance: QUETIAPINE
     Indication: ANXIETY
  6. MIRTAZAPINE. [Suspect]
     Active Substance: MIRTAZAPINE
     Indication: ANXIETY
  7. LAMOTRIGINE. [Suspect]
     Active Substance: LAMOTRIGINE
     Indication: ANXIETY
  8. VENLAFAXINE [Suspect]
     Active Substance: VENLAFAXINE HYDROCHLORIDE
     Indication: ANXIETY
  9. FERROUS SULFATE. [Concomitant]
     Active Substance: FERROUS SULFATE
     Indication: MINERAL SUPPLEMENTATION

REACTIONS (14)
  - Acute kidney injury [Fatal]
  - Febrile neutropenia [Fatal]
  - Seizure [Fatal]
  - Anaemia [Fatal]
  - Cardiac arrest [Fatal]
  - Pharyngitis [Fatal]
  - Cellulitis orbital [Fatal]
  - Septic shock [Fatal]
  - Neutropenia [Fatal]
  - Agranulocytosis [Fatal]
  - Liver function test increased [Fatal]
  - Platelet count decreased [Fatal]
  - Oral candidiasis [Fatal]
  - Multiple organ dysfunction syndrome [Fatal]
